FAERS Safety Report 5951006-2 (Version None)
Quarter: 2008Q4

REPORT INFORMATION
  Report Type: 
  Country: None (occurrence: None)
  Receive Date: 20081110
  Receipt Date: 20081027
  Transmission Date: 20090506
  Serious: Yes (Hospitalization)
  Sender: FDA-Public Use
  Company Number: 230827K08USA

PATIENT
  Age: 47 Year
  Sex: Female
  Weight: 87 kg

DRUGS (2)
  1. REBIF [Suspect]
     Indication: MULTIPLE SCLEROSIS
     Dosage: 44 MCG, 3 IN 1 WEEKS, SUBCUTANEOUS
     Route: 058
     Dates: start: 20080121
  2. LISINOPRIL [Concomitant]

REACTIONS (5)
  - ANAEMIA [None]
  - CONDITION AGGRAVATED [None]
  - DRUG DOSE OMISSION [None]
  - MULTIPLE SCLEROSIS [None]
  - UTERINE LEIOMYOMA [None]
